FAERS Safety Report 8099263-3 (Version None)
Quarter: 2012Q1

REPORT INFORMATION
  Report Type: 
  Country: None (occurrence: None)
  Receive Date: 20120129
  Receipt Date: 20111026
  Transmission Date: 20120608
  Serious: No
  Sender: FDA-Public Use
  Company Number: US-ABBOTT-11P-163-0869316-00

PATIENT
  Sex: Female
  Weight: 157.99 kg

DRUGS (8)
  1. METFORMIN HCL [Concomitant]
     Indication: POLYCYSTIC OVARIES
  2. HUMIRA [Suspect]
     Indication: PSORIASIS
     Dates: start: 20110401
  3. DILTIAZEM HCL [Concomitant]
     Indication: ATRIAL FIBRILLATION
  4. CELEBREX [Concomitant]
     Indication: PRODUCT USED FOR UNKNOWN INDICATION
  5. PROZAC [Concomitant]
     Indication: PRODUCT USED FOR UNKNOWN INDICATION
  6. LISINOPRIL AND HYDROCHLOROTHIAZIDE [Concomitant]
     Indication: HYPERTENSION
  7. LEVOXYL [Concomitant]
     Indication: HYPOTHYROIDISM
  8. ALLEGRA [Concomitant]
     Indication: HYPERSENSITIVITY

REACTIONS (5)
  - HEAD DISCOMFORT [None]
  - RHINORRHOEA [None]
  - MALAISE [None]
  - COUGH [None]
  - LOWER RESPIRATORY TRACT INFECTION [None]
